FAERS Safety Report 4424536-2 (Version None)
Quarter: 2004Q3

REPORT INFORMATION
  Report Type: 
  Country: None (occurrence: None)
  Receive Date: 20040719
  Receipt Date: 20311208
  Transmission Date: 20050211
  Serious: Yes (Hospitalization)
  Sender: FDA-Public Use
  Company Number: 188191

PATIENT
  Sex: Female

DRUGS (1)
  1. AVONEX [Suspect]
     Indication: MULTIPLE SCLEROSIS

REACTIONS (10)
  - BACK PAIN [None]
  - CONSTIPATION [None]
  - CRYING [None]
  - DEPRESSION [None]
  - DYSURIA [None]
  - FEELING ABNORMAL [None]
  - HEARING IMPAIRED [None]
  - MIGRAINE [None]
  - PARKINSONISM [None]
  - VISUAL ACUITY REDUCED [None]
